FAERS Safety Report 18855055 (Version 1)
Quarter: 2021Q1

REPORT INFORMATION
  Report Type: Spontaneous
  Country: US (occurrence: US)
  Receive Date: 20210205
  Receipt Date: 20210205
  Transmission Date: 20210420
  Serious: No
  Sender: FDA-Public Use
  Company Number: US-TEVA-2021-US-1873419

PATIENT
  Sex: Female

DRUGS (1)
  1. TEVA CLONAZEPAM [Suspect]
     Active Substance: CLONAZEPAM
     Route: 065
     Dates: start: 202101

REACTIONS (9)
  - Drug ineffective [Unknown]
  - Presyncope [Unknown]
  - Dizziness [Unknown]
  - Drug intolerance [Unknown]
  - Product physical issue [Unknown]
  - Anxiety [Unknown]
  - Palpitations [Unknown]
  - Hyperhidrosis [Unknown]
  - Product substitution issue [Unknown]
